FAERS Safety Report 10519047 (Version 1)
Quarter: 2014Q4

REPORT INFORMATION
  Report Type: Spontaneous
  Country: US (occurrence: None)
  Receive Date: 20141014
  Receipt Date: 20141014
  Transmission Date: 20150528
  Serious: No
  Sender: FDA-Public Use
  Company Number: None

PATIENT
  Age: 45 Year
  Sex: Female
  Weight: 65 kg

DRUGS (3)
  1. CETIRIZINE HYDROCHLORIDE 10MG TABLETS [Suspect]
     Active Substance: CETIRIZINE HYDROCHLORIDE
     Indication: SEASONAL ALLERGY
     Dosage: 1 A DAY?
  2. CETIRIZINE HYDROCHLORIDE 10MG TABLETS [Suspect]
     Active Substance: CETIRIZINE HYDROCHLORIDE
     Indication: SNEEZING
     Dosage: 1 A DAY?
  3. CETIRIZINE HYDROCHLORIDE 10MG TABLETS [Suspect]
     Active Substance: CETIRIZINE HYDROCHLORIDE
     Indication: EYE PRURITUS
     Dosage: 1 A DAY?

REACTIONS (4)
  - Pruritus generalised [None]
  - Drug withdrawal syndrome [None]
  - Pruritus [None]
  - Drug dependence [None]

NARRATIVE: CASE EVENT DATE: 20141009
